FAERS Safety Report 4425769-1 (Version None)
Quarter: 2004Q3

REPORT INFORMATION
  Report Type: 
  Country: None (occurrence: None)
  Receive Date: 20040810
  Receipt Date: 20040730
  Transmission Date: 20050211
  Serious: Yes (Hospitalization)
  Sender: FDA-Public Use
  Company Number: STA-AE-04-MTX-340

PATIENT
  Age: 77 Year
  Sex: Female

DRUGS (10)
  1. RHEUMATREX [Suspect]
     Indication: RHEUMATOID ARTHRITIS
     Dosage: 6 MG 1X PER 1 DAY, ORAL
     Route: 048
     Dates: start: 20040607, end: 20040610
  2. CLINORIL [Concomitant]
  3. MAGNESIUM OXIDE [Concomitant]
  4. GASMOTIN (MOSAPRIDE CITRATE) [Concomitant]
  5. JUVELA (TOCOPHEROL) [Concomitant]
  6. SHIOSOL (SODIUM AUROTHIOMALATE) [Concomitant]
  7. SUVENYL (HYALURONIDASE) [Concomitant]
  8. METHYCOBAL (MECOBALAMIN) [Concomitant]
  9. MERISLON (BETAHISTINE HYDROCHLORIDE) [Concomitant]
  10. TOFRANIL [Concomitant]

REACTIONS (5)
  - ANOREXIA [None]
  - MEDICATION ERROR [None]
  - PANCYTOPENIA [None]
  - PURPURA [None]
  - STOMATITIS [None]
